FAERS Safety Report 9354038 (Version 3)
Quarter: 2014Q1

REPORT INFORMATION
  Report Type: Spontaneous
  Country: CA (occurrence: CA)
  Receive Date: 20130618
  Receipt Date: 20140114
  Transmission Date: 20141002
  Serious: Yes (Other)
  Sender: FDA-Public Use
  Company Number: CA-009507513-1306CAN008053

PATIENT
  Age: 87 Year
  Sex: Female
  Weight: 50 kg

DRUGS (7)
  1. CLARITIN ALLERGY [Suspect]
     Indication: PRODUCT USED FOR UNKNOWN INDICATION
     Dosage: 10 MG, ONCE DAILY
     Route: 048
  2. ARICEPT [Suspect]
     Indication: PRODUCT USED FOR UNKNOWN INDICATION
     Dosage: 5 MG, ONCE DAILY
     Route: 048
  3. BUSPAR [Concomitant]
     Indication: PRODUCT USED FOR UNKNOWN INDICATION
     Dosage: 10 MG, TWICE DAILY
     Route: 048
  4. COUMADIN [Concomitant]
     Indication: PRODUCT USED FOR UNKNOWN INDICATION
     Dosage: 1 MG, ONCE DAILY
     Route: 048
  5. ISOPTIN SR [Concomitant]
     Indication: PRODUCT USED FOR UNKNOWN INDICATION
     Dosage: 120 MG, ONCE DAILY
     Route: 048
  6. RESTORIL (TEMAZEPAM) [Concomitant]
     Indication: PRODUCT USED FOR UNKNOWN INDICATION
     Dosage: 30 MG, ONCE DAILY
     Route: 048
  7. TENORMIN [Concomitant]
     Indication: PRODUCT USED FOR UNKNOWN INDICATION
     Dosage: 100 MG, ONCE DAILY
     Route: 048

REACTIONS (6)
  - Electrocardiogram QT prolonged [Recovered/Resolved]
  - Cardiac flutter [Recovered/Resolved]
  - Dizziness [Recovered/Resolved]
  - Electrocardiogram abnormal [Recovered/Resolved]
  - Syncope [Recovered/Resolved]
  - Syncope [Recovered/Resolved]
